FAERS Safety Report 17405307 (Version 1)
Quarter: 2020Q1

REPORT INFORMATION
  Report Type: Report from Study
  Country: IT (occurrence: IT)
  Receive Date: 20200212
  Receipt Date: 20200212
  Transmission Date: 20200409
  Serious: Yes (Other)
  Sender: FDA-Public Use
  Company Number: IT-TEVA-2020-IT-1183645

PATIENT
  Age: 45 Year
  Sex: Female
  Weight: 49 kg

DRUGS (4)
  1. TAXOTERE [Suspect]
     Active Substance: DOCETAXEL
     Indication: GASTRIC CANCER
     Dosage: 35MG/M2
     Route: 042
     Dates: start: 20191223
  2. FLUOROURACILE TEVA 500 MG/10 ML SOLUZIONE PER INFUSIONE [Suspect]
     Active Substance: FLUOROURACIL
     Indication: GASTRIC CANCER
     Dosage: 3900MG
     Route: 041
     Dates: start: 20191223
  3. CALCIO LEVOFOLINATO TEVA 175 MG POLVERE PER SOLUZIONE PER INFUSIONE [Concomitant]
     Active Substance: LEVOLEUCOVORIN CALCIUM
     Indication: GASTRIC CANCER
     Dosage: 200MG/M2
     Route: 042
     Dates: start: 20191223
  4. OXALIPLATINO TEVA 5 MG / ML, CONCENTRATO PER SOLUZIONE PER INFUSIONE [Suspect]
     Active Substance: OXALIPLATIN
     Indication: GASTRIC CANCER
     Dosage: 85MG/M2
     Route: 042
     Dates: start: 20191223

REACTIONS (2)
  - Neutropenia [Unknown]
  - Leukopenia [Unknown]

NARRATIVE: CASE EVENT DATE: 20200122
